FAERS Safety Report 7591894-X (Version None)
Quarter: 2011Q2

REPORT INFORMATION
  Report Type: 
  Country: None (occurrence: None)
  Receive Date: 20110603
  Receipt Date: 20110130
  Transmission Date: 20111010
  Serious: Yes (Disabling)
  Sender: FDA-Public Use
  Company Number: US-SEPTODONT-201100017

PATIENT
  Sex: Female
  Weight: 63.5 kg

DRUGS (1)
  1. SEPTOCAINE [Suspect]
     Indication: LOCAL ANAESTHESIA
     Dosage: FREQUENCY ONCE DENTAL
     Route: 004
     Dates: start: 20100408

REACTIONS (2)
  - AGEUSIA [None]
  - ANOSMIA [None]
